FAERS Safety Report 8260659-8 (Version None)
Quarter: 2012Q2

REPORT INFORMATION
  Report Type: 
  Country: None (occurrence: None)
  Receive Date: 20120405
  Receipt Date: 20120322
  Transmission Date: 20120825
  Serious: Yes (Hospitalization, Other)
  Sender: FDA-Public Use
  Company Number: BR-AMGEN-BRASP2012020070

PATIENT
  Age: 56 Year
  Sex: Male
  Weight: 107 kg

DRUGS (7)
  1. SUSTRATE [Concomitant]
     Indication: CARDIAC DISORDER
     Dosage: UNSPECIFIED DOSAGE THRICE A DAY
  2. ASPIRIN [Concomitant]
     Dosage: UNSPECIFIED DOSAGE TWICE A DAY
  3. AMLODIPINE [Concomitant]
     Indication: HYPERTENSION
     Dosage: UNSPECIFIED DOSAGE THRICE A DAY
  4. ENBREL [Suspect]
     Indication: PSORIATIC ARTHROPATHY
  5. ENBREL [Suspect]
     Indication: ANKYLOSING SPONDYLITIS
     Dosage: 50 MG, ONCE WEEKLY
     Route: 058
  6. DIOVAN [Concomitant]
     Indication: HYPERTENSION
     Dosage: UNK
  7. AMITRIPTYLINE HCL [Concomitant]
     Indication: ANTIDEPRESSANT THERAPY
     Dosage: 25 MG, 3X/DAY

REACTIONS (15)
  - SKIN DISCOLOURATION [None]
  - JOINT SWELLING [None]
  - BLOOD PRESSURE ABNORMAL [None]
  - ANGINA UNSTABLE [None]
  - CHILLS [None]
  - PALPITATIONS [None]
  - DRUG INEFFECTIVE [None]
  - NECK PAIN [None]
  - HEADACHE [None]
  - PSORIASIS [None]
  - HYPERTENSIVE CRISIS [None]
  - FORMICATION [None]
  - CIRCUMSTANCE OR INFORMATION CAPABLE OF LEADING TO MEDICATION ERROR [None]
  - ARTHRALGIA [None]
  - PAIN [None]
